FAERS Safety Report 17625492 (Version 2)
Quarter: 2020Q2

REPORT INFORMATION
  Report Type: Spontaneous
  Country: US (occurrence: US)
  Receive Date: 20200404
  Receipt Date: 20200618
  Transmission Date: 20200713
  Serious: No
  Sender: FDA-Public Use
  Company Number: US-CELGENEUS-USA-20200309730

PATIENT
  Sex: Male
  Weight: 151.18 kg

DRUGS (3)
  1. REVLIMID [Suspect]
     Active Substance: LENALIDOMIDE
     Indication: PLASMA CELL MYELOMA
     Dosage: 25 MILLIGRAM
     Route: 048
     Dates: start: 201710
  2. REVLIMID [Suspect]
     Active Substance: LENALIDOMIDE
     Route: 048
     Dates: start: 201803
  3. REVLIMID [Suspect]
     Active Substance: LENALIDOMIDE
     Dosage: 10 MILLIGRAM
     Route: 048
     Dates: start: 201805

REACTIONS (8)
  - Anxiety [Unknown]
  - Depressed mood [Unknown]
  - Memory impairment [Unknown]
  - Mood swings [Unknown]
  - Blood testosterone decreased [Unknown]
  - Asthenia [Unknown]
  - Libido decreased [Unknown]
  - Fatigue [Unknown]
